FAERS Safety Report 7290298-7 (Version None)
Quarter: 2011Q1

REPORT INFORMATION
  Report Type: 
  Country: None (occurrence: None)
  Receive Date: 20110208
  Receipt Date: 20110208
  Transmission Date: 20110831
  Serious: Yes (Other)
  Sender: FDA-Public Use
  Company Number: None

PATIENT
  Age: 56 Year
  Sex: Male
  Weight: 105.2345 kg

DRUGS (1)
  1. TRACLEAR [Suspect]
     Indication: PULMONARY ARTERIAL HYPERTENSION
     Dosage: 125 MG BID PO (047)
     Route: 048

REACTIONS (2)
  - LEUKOPENIA [None]
  - CONDITION AGGRAVATED [None]
